FAERS Safety Report 12466466 (Version 1)
Quarter: 2016Q2

REPORT INFORMATION
  Report Type: Spontaneous
  Country: GB (occurrence: GB)
  Receive Date: 20160615
  Receipt Date: 20160615
  Transmission Date: 20160815
  Serious: Yes (Other)
  Sender: FDA-Public Use
  Company Number: GB-ROCHE-1738205

PATIENT
  Sex: Male

DRUGS (1)
  1. MABTHERA [Suspect]
     Active Substance: RITUXIMAB
     Indication: PRODUCT USED FOR UNKNOWN INDICATION
     Dosage: 8 WEEKLY CYCLE.?LATS DOSE : 04/APR/2016
     Route: 065

REACTIONS (8)
  - Nausea [Unknown]
  - Malaise [Unknown]
  - Mouth ulceration [Unknown]
  - Ill-defined disorder [Unknown]
  - Loose tooth [Unknown]
  - Tooth avulsion [Unknown]
  - Headache [Unknown]
  - Gingival discolouration [Unknown]
